FAERS Safety Report 16465093 (Version 4)
Quarter: 2021Q4

REPORT INFORMATION
  Report Type: Spontaneous
  Country: US (occurrence: US)
  Receive Date: 20190621
  Receipt Date: 20211019
  Transmission Date: 20220303
  Serious: No
  Sender: FDA-Public Use
  Company Number: US-ALNYLAM PHARMACEUTICALS, INC.-ALN-2019-000445

PATIENT

DRUGS (1)
  1. ONPATTRO [Suspect]
     Active Substance: PATISIRAN SODIUM
     Indication: Hereditary neuropathic amyloidosis
     Dosage: UNK, Q3W
     Route: 042

REACTIONS (8)
  - Blood pressure decreased [Unknown]
  - Infusion related reaction [Unknown]
  - Dizziness [Unknown]
  - Infection [Unknown]
  - Abdominal pain upper [Unknown]
  - Prostatic pain [Unknown]
  - Intentional dose omission [Unknown]
  - Dizziness [Unknown]

NARRATIVE: CASE EVENT DATE: 20190614
